FAERS Safety Report 18044546 (Version 4)
Quarter: 2022Q4

REPORT INFORMATION
  Report Type: Report from Study
  Country: DE (occurrence: DE)
  Receive Date: 20200720
  Receipt Date: 20221216
  Transmission Date: 20230112
  Serious: Yes (Other)
  Sender: FDA-Public Use
  Company Number: DE-SHIRE-DE201850706

PATIENT
  Sex: Female
  Weight: 82 kg

DRUGS (30)
  1. TEDUGLUTIDE [Suspect]
     Active Substance: TEDUGLUTIDE
     Indication: Short-bowel syndrome
     Dosage: 5 MILLIGRAM (DAILY DOSE 0.06 MILLIGRAM/KILOGRAM), 1X/DAY:QD
     Route: 065
     Dates: start: 20161128, end: 20170315
  2. TEDUGLUTIDE [Suspect]
     Active Substance: TEDUGLUTIDE
     Indication: Short-bowel syndrome
     Dosage: 5 MILLIGRAM (DAILY DOSE 0.06 MILLIGRAM/KILOGRAM), 1X/DAY:QD
     Route: 065
     Dates: start: 20161128, end: 20170315
  3. TEDUGLUTIDE [Suspect]
     Active Substance: TEDUGLUTIDE
     Indication: Short-bowel syndrome
     Dosage: 5 MILLIGRAM (DAILY DOSE 0.06 MILLIGRAM/KILOGRAM), 1X/DAY:QD
     Route: 065
     Dates: start: 20161128, end: 20170315
  4. TEDUGLUTIDE [Suspect]
     Active Substance: TEDUGLUTIDE
     Indication: Short-bowel syndrome
     Dosage: 5 MILLIGRAM (DAILY DOSE 0.06 MILLIGRAM/KILOGRAM), 1X/DAY:QD
     Route: 065
     Dates: start: 20161128, end: 20170315
  5. TEDUGLUTIDE [Suspect]
     Active Substance: TEDUGLUTIDE
     Dosage: 2.5 MILLIGRAM (DAILY DOSE 0.03 MILLIGRAM/KILOGRAM), 1X/DAY:QD
     Route: 065
     Dates: start: 20170316, end: 20170413
  6. TEDUGLUTIDE [Suspect]
     Active Substance: TEDUGLUTIDE
     Dosage: 2.5 MILLIGRAM (DAILY DOSE 0.03 MILLIGRAM/KILOGRAM), 1X/DAY:QD
     Route: 065
     Dates: start: 20170316, end: 20170413
  7. TEDUGLUTIDE [Suspect]
     Active Substance: TEDUGLUTIDE
     Dosage: 2.5 MILLIGRAM (DAILY DOSE 0.03 MILLIGRAM/KILOGRAM), 1X/DAY:QD
     Route: 065
     Dates: start: 20170316, end: 20170413
  8. TEDUGLUTIDE [Suspect]
     Active Substance: TEDUGLUTIDE
     Dosage: 2.5 MILLIGRAM (DAILY DOSE 0.03 MILLIGRAM/KILOGRAM), 1X/DAY:QD
     Route: 065
     Dates: start: 20170316, end: 20170413
  9. TEDUGLUTIDE [Suspect]
     Active Substance: TEDUGLUTIDE
     Dosage: 4 MILLIGRAM (DAILY DOSE: 0.05 MILLIGRAM/KILOGRAM), 1X/DAY:QD
     Route: 065
     Dates: start: 20170414, end: 20170421
  10. TEDUGLUTIDE [Suspect]
     Active Substance: TEDUGLUTIDE
     Dosage: 4 MILLIGRAM (DAILY DOSE: 0.05 MILLIGRAM/KILOGRAM), 1X/DAY:QD
     Route: 065
     Dates: start: 20170414, end: 20170421
  11. TEDUGLUTIDE [Suspect]
     Active Substance: TEDUGLUTIDE
     Dosage: 4 MILLIGRAM (DAILY DOSE: 0.05 MILLIGRAM/KILOGRAM), 1X/DAY:QD
     Route: 065
     Dates: start: 20170414, end: 20170421
  12. TEDUGLUTIDE [Suspect]
     Active Substance: TEDUGLUTIDE
     Dosage: 4 MILLIGRAM (DAILY DOSE: 0.05 MILLIGRAM/KILOGRAM), 1X/DAY:QD
     Route: 065
     Dates: start: 20170414, end: 20170421
  13. TEDUGLUTIDE [Suspect]
     Active Substance: TEDUGLUTIDE
     Dosage: 2.5 MILLIGRAM (DALY DOSE: 0.03 MILLIGRAM/KILOGRAM), 1X/DAY:QD
     Route: 065
     Dates: start: 20170422, end: 20170424
  14. TEDUGLUTIDE [Suspect]
     Active Substance: TEDUGLUTIDE
     Dosage: 2.5 MILLIGRAM (DALY DOSE: 0.03 MILLIGRAM/KILOGRAM), 1X/DAY:QD
     Route: 065
     Dates: start: 20170422, end: 20170424
  15. TEDUGLUTIDE [Suspect]
     Active Substance: TEDUGLUTIDE
     Dosage: 2.5 MILLIGRAM (DALY DOSE: 0.03 MILLIGRAM/KILOGRAM), 1X/DAY:QD
     Route: 065
     Dates: start: 20170422, end: 20170424
  16. TEDUGLUTIDE [Suspect]
     Active Substance: TEDUGLUTIDE
     Dosage: 2.5 MILLIGRAM (DALY DOSE: 0.03 MILLIGRAM/KILOGRAM), 1X/DAY:QD
     Route: 065
     Dates: start: 20170422, end: 20170424
  17. TEDUGLUTIDE [Suspect]
     Active Substance: TEDUGLUTIDE
     Dosage: 3.1 MILLIGRAM (DAILY DOSE: 0.04 MILLIGRAM/KILOGRAM), 1X/DAY:QD
     Route: 065
     Dates: start: 20170425, end: 20170427
  18. TEDUGLUTIDE [Suspect]
     Active Substance: TEDUGLUTIDE
     Dosage: 3.1 MILLIGRAM (DAILY DOSE: 0.04 MILLIGRAM/KILOGRAM), 1X/DAY:QD
     Route: 065
     Dates: start: 20170425, end: 20170427
  19. TEDUGLUTIDE [Suspect]
     Active Substance: TEDUGLUTIDE
     Dosage: 3.1 MILLIGRAM (DAILY DOSE: 0.04 MILLIGRAM/KILOGRAM), 1X/DAY:QD
     Route: 065
     Dates: start: 20170425, end: 20170427
  20. TEDUGLUTIDE [Suspect]
     Active Substance: TEDUGLUTIDE
     Dosage: 3.1 MILLIGRAM (DAILY DOSE: 0.04 MILLIGRAM/KILOGRAM), 1X/DAY:QD
     Route: 065
     Dates: start: 20170425, end: 20170427
  21. TEDUGLUTIDE [Suspect]
     Active Substance: TEDUGLUTIDE
     Dosage: 2.5 MILLIGRAM (DAILY DOSE: 2.5 MILLIGRAM/KILOGRAM),1X/DAY:QD
     Route: 065
     Dates: start: 20170428, end: 20170508
  22. TEDUGLUTIDE [Suspect]
     Active Substance: TEDUGLUTIDE
     Dosage: 2.5 MILLIGRAM (DAILY DOSE: 2.5 MILLIGRAM/KILOGRAM),1X/DAY:QD
     Route: 065
     Dates: start: 20170428, end: 20170508
  23. TEDUGLUTIDE [Suspect]
     Active Substance: TEDUGLUTIDE
     Dosage: 2.5 MILLIGRAM (DAILY DOSE: 2.5 MILLIGRAM/KILOGRAM),1X/DAY:QD
     Route: 065
     Dates: start: 20170428, end: 20170508
  24. TEDUGLUTIDE [Suspect]
     Active Substance: TEDUGLUTIDE
     Dosage: 2.5 MILLIGRAM (DAILY DOSE: 2.5 MILLIGRAM/KILOGRAM),1X/DAY:QD
     Route: 065
     Dates: start: 20170428, end: 20170508
  25. USTEKINUMAB [Concomitant]
     Active Substance: USTEKINUMAB
     Indication: Crohn^s disease
  26. USTEKINUMAB [Concomitant]
     Active Substance: USTEKINUMAB
     Dosage: 1 UNK, MONTHLY
     Route: 058
     Dates: start: 20200303, end: 20200709
  27. AZATHIOPRINE [Concomitant]
     Active Substance: AZATHIOPRINE
     Indication: Crohn^s disease
  28. PRAMIPEXOLE [Concomitant]
     Active Substance: PRAMIPEXOLE
     Indication: Restless legs syndrome
     Dosage: 0.18 MILLIGRAM, BID
     Route: 048
     Dates: start: 2020
  29. AMLODIPINE [Concomitant]
     Active Substance: AMLODIPINE BESYLATE
     Indication: Hypertension
     Dosage: 5 MILLIGRAM, QD
     Route: 048
     Dates: start: 20211021
  30. RAMIPRIL [Concomitant]
     Active Substance: RAMIPRIL
     Dosage: 7.50 MILLIGRAM, QD
     Route: 048
     Dates: start: 20200716, end: 202010

REACTIONS (2)
  - Squamous cell carcinoma [Recovered/Resolved]
  - Bone abscess [Recovered/Resolved]

NARRATIVE: CASE EVENT DATE: 20180601
